FAERS Safety Report 17409428 (Version 3)
Quarter: 2020Q2

REPORT INFORMATION
  Report Type: Spontaneous
  Country: US (occurrence: US)
  Receive Date: 20200212
  Receipt Date: 20200514
  Transmission Date: 20200713
  Serious: Yes (Other)
  Sender: FDA-Public Use
  Company Number: US-UNITED THERAPEUTICS-UNT-2019-021822

PATIENT
  Age: 13 Year
  Sex: Female
  Weight: 99 kg

DRUGS (5)
  1. WARFARIN [Suspect]
     Active Substance: WARFARIN
     Indication: PULMONARY HYPERTENSION
     Dosage: UNK (VARYING DOSE BAND ON INR)
     Route: 065
     Dates: start: 20181101, end: 20190416
  2. TADALAFIL. [Suspect]
     Active Substance: TADALAFIL
     Indication: PULMONARY HYPERTENSION
     Dosage: 40 MG, DAILY
     Route: 065
     Dates: start: 20181102, end: 20200102
  3. REMODULIN [Suspect]
     Active Substance: TREPROSTINIL
     Indication: PULMONARY ARTERIAL HYPERTENSION
     Dosage: 0.080 ?G/KG, CONTINUING
     Route: 058
     Dates: start: 20181116, end: 20200114
  4. REMODULIN [Suspect]
     Active Substance: TREPROSTINIL
     Indication: PULMONARY HYPERTENSION
  5. AMBRISENTAN [Suspect]
     Active Substance: AMBRISENTAN
     Indication: PULMONARY HYPERTENSION
     Dosage: UNK (10 MG)
     Route: 065
     Dates: start: 20181023, end: 20190321

REACTIONS (5)
  - Liver disorder [Unknown]
  - Hepatorenal syndrome [Unknown]
  - Hepatitis [Not Recovered/Not Resolved]
  - Hepatic enzyme increased [Unknown]
  - Drug-induced liver injury [Not Recovered/Not Resolved]

NARRATIVE: CASE EVENT DATE: 201812
